FAERS Safety Report 5691018-X (Version None)
Quarter: 2008Q2

REPORT INFORMATION
  Report Type: 
  Country: None (occurrence: None)
  Receive Date: 20080401
  Receipt Date: 20080321
  Transmission Date: 20081010
  Serious: Yes (Other)
  Sender: FDA-Public Use
  Company Number: JP-PFIZER INC-2007060433

PATIENT
  Age: 78 Year
  Sex: Female

DRUGS (4)
  1. CARDENALIN [Suspect]
     Indication: HYPERTENSION
     Route: 048
     Dates: start: 20031121, end: 20071127
  2. TRICHLORMETHIAZIDE [Concomitant]
     Indication: HYPERTENSION
  3. ANTIHYPERTENSIVES [Concomitant]
     Indication: HYPERTENSION
  4. DILTIAZEM HYDROCHLORIDE [Concomitant]
     Route: 048

REACTIONS (1)
  - RED BLOOD CELL COUNT DECREASED [None]
